FAERS Safety Report 9130298 (Version 1)
Quarter: 2013Q1

REPORT INFORMATION
  Report Type: Spontaneous
  Country: US (occurrence: US)
  Receive Date: 20130301
  Receipt Date: 20130301
  Transmission Date: 20140127
  Serious: Yes (Other)
  Sender: FDA-Public Use
  Company Number: US-009507513-1302USA013265

PATIENT
  Sex: Female

DRUGS (7)
  1. ZOCOR [Suspect]
     Dosage: UNK
     Route: 058
  2. REBIF [Suspect]
     Dosage: 44 MICROGRAM, 3 IN ONE WEEK
     Route: 058
     Dates: start: 20111021, end: 20120123
  3. REBIF [Suspect]
     Dosage: UNK
     Dates: start: 20120713
  4. BACLOFEN [Concomitant]
     Dosage: UNK
  5. NEURONTIN [Concomitant]
     Dosage: UNK
  6. VITAMINS (UNSPECIFIED) [Concomitant]
     Dosage: UNK
  7. IBUPROFEN [Concomitant]
     Dosage: UNK

REACTIONS (2)
  - Hepatic cirrhosis [Unknown]
  - Hepatic enzyme increased [Unknown]
